FAERS Safety Report 10977481 (Version 1)
Quarter: 2015Q1

REPORT INFORMATION
  Report Type: Spontaneous
  Country: GB (occurrence: None)
  Receive Date: 20150330
  Receipt Date: 20150330
  Transmission Date: 20150721
  Serious: Yes (Other)
  Sender: FDA-Public Use
  Company Number: 20150812

PATIENT
  Age: 61 Year
  Sex: Female

DRUGS (10)
  1. AMITRIPTYLINE [Concomitant]
     Active Substance: AMITRIPTYLINE
  2. ADCAL-D3 (CALCIUM CARBONATE, COLECALCIFEROL) [Concomitant]
  3. DOMPERIDONE [Concomitant]
     Active Substance: DOMPERIDONE
  4. METHOTREXATE (METHOTREXATE) [Suspect]
     Active Substance: METHOTREXATE
     Indication: POLYMYALGIA RHEUMATICA
     Dosage: 1 X 7.5 MG IN 1 WEEK
     Dates: start: 20141016
  5. SOLIFENACIN [Concomitant]
     Active Substance: SOLIFENACIN
  6. PREDNISOLONE. [Concomitant]
     Active Substance: PREDNISOLONE
  7. FOLIC ACID. [Concomitant]
     Active Substance: FOLIC ACID
  8. CLIMAGEST (OESTRADIOL VALERATE, NORETHISTERONE) [Concomitant]
  9. NAPROXEN. [Concomitant]
     Active Substance: NAPROXEN
  10. RANITIDINE [Concomitant]
     Active Substance: RANITIDINE\RANITIDINE HYDROCHLORIDE

REACTIONS (5)
  - Peripheral coldness [None]
  - Chillblains [None]
  - Asthenia [None]
  - Skin discolouration [None]
  - Skin necrosis [None]
